FAERS Safety Report 10206871 (Version 1)
Quarter: 2014Q2

REPORT INFORMATION
  Report Type: Spontaneous
  Country: FR (occurrence: FR)
  Receive Date: 20140530
  Receipt Date: 20140530
  Transmission Date: 20141212
  Serious: Yes (Death, Other)
  Sender: FDA-Public Use
  Company Number: PHHY2014FR065914

PATIENT
  Sex: 0

DRUGS (1)
  1. EVEROLIMUS [Suspect]
     Indication: RENAL CELL CARCINOMA

REACTIONS (7)
  - General physical health deterioration [Fatal]
  - Lymphadenopathy [Unknown]
  - Bone lesion [Unknown]
  - Malignant neoplasm progression [Unknown]
  - Metastases to the mediastinum [Unknown]
  - Metastases to abdominal cavity [Unknown]
  - Metastases to pelvis [Unknown]
